FAERS Safety Report 4678277-7 (Version None)
Quarter: 2005Q2

REPORT INFORMATION
  Report Type: 
  Country: None (occurrence: None)
  Receive Date: 20050527
  Receipt Date: 20050518
  Transmission Date: 20051028
  Serious: Yes (Hospitalization, Disabling)
  Sender: FDA-Public Use
  Company Number: 2005064618

PATIENT
  Age: 60 Year
  Sex: Female
  Weight: 70 kg

DRUGS (3)
  1. PHENYTOIN SODIUM [Suspect]
     Indication: EPILEPSY
     Dosage: 300 MG (300 MG, 1 IN 1 D), ORAL
     Route: 048
  2. ERYTHROMYCIN (ERYTHROMYCIN) [Suspect]
     Indication: INFECTION
     Dosage: ORAL
     Route: 048
     Dates: start: 20050411, end: 20050418
  3. ALUPENT [Concomitant]

REACTIONS (6)
  - ANTICONVULSANT DRUG LEVEL INCREASED [None]
  - BALANCE DISORDER [None]
  - DRUG INEFFECTIVE [None]
  - DRUG INTERACTION [None]
  - INFECTION [None]
  - RESPIRATORY DISORDER [None]
